FAERS Safety Report 6752399-9 (Version None)
Quarter: 2010Q2

REPORT INFORMATION
  Report Type: 
  Country: None (occurrence: None)
  Receive Date: 20100601
  Receipt Date: 20100601
  Transmission Date: 20101027
  Serious: Yes (Hospitalization)
  Sender: FDA-Public Use
  Company Number: None

PATIENT
  Sex: Female
  Weight: 23.8138 kg

DRUGS (2)
  1. RAPAMUNE [Suspect]
     Indication: NEUROFIBROMATOSIS
     Dosage: 1.1 ML BID PO
     Route: 048
     Dates: start: 20080616, end: 20100422
  2. AEOROSOLIZED PENTAMIDINE [Concomitant]

REACTIONS (2)
  - EYE PROSTHESIS INSERTION [None]
  - SURGICAL PROCEDURE REPEATED [None]
